FAERS Safety Report 25952140 (Version 1)
Quarter: 2025Q4

REPORT INFORMATION
  Report Type: Spontaneous
  Country: US (occurrence: None)
  Receive Date: 20251023
  Receipt Date: 20251023
  Transmission Date: 20260117
  Serious: Yes (Hospitalization)
  Sender: FDA-CTU
  Company Number: None

PATIENT
  Age: 34 Month
  Sex: Male
  Weight: 12.2 kg

DRUGS (2)
  1. CYCLOPHOSPHAMIDE [Suspect]
     Active Substance: CYCLOPHOSPHAMIDE
     Dosage: OTHER QUANTITY : 220 MG DOSE WAS ADMINISTERED EVERY 24 HOURS;?
     Dates: end: 20250725
  2. TOPOTECAN [Suspect]
     Active Substance: TOPOTECAN HYDROCHLORIDE
     Dosage: OTHER QUANTITY : 0.68 MG DOSE WAS ADMINISTERED EVERY 24 HOURS;?
     Dates: end: 20250725

REACTIONS (4)
  - Pleural effusion [None]
  - Haemothorax [None]
  - Tumour haemorrhage [None]
  - Neoplasm [None]

NARRATIVE: CASE EVENT DATE: 20250725
